FAERS Safety Report 11048737 (Version 1)
Quarter: 2015Q2

REPORT INFORMATION
  Report Type: Spontaneous
  Country: AU (occurrence: AU)
  Receive Date: 20150420
  Receipt Date: 20150420
  Transmission Date: 20150821
  Serious: Yes (Other)
  Sender: FDA-Public Use
  Company Number: AU-CIPLA LTD.-2015AU03066

PATIENT

DRUGS (1)
  1. TERBINAFINE [Suspect]
     Active Substance: TERBINAFINE
     Dosage: 250 MG/DAY
     Route: 048

REACTIONS (2)
  - Mouth ulceration [Recovered/Resolved]
  - Cellulitis [Recovered/Resolved]
